FAERS Safety Report 14950522 (Version 1)
Quarter: 2018Q2

REPORT INFORMATION
  Report Type: Spontaneous
  Country: US (occurrence: US)
  Receive Date: 20180530
  Receipt Date: 20180530
  Transmission Date: 20180711
  Serious: No
  Sender: FDA-Public Use
  Company Number: US-CONCORDIA PHARMACEUTICALS INC.-GSH201706-003410

PATIENT
  Sex: Female
  Weight: 37.1 kg

DRUGS (1)
  1. BENZYL ALCOHOL [Suspect]
     Active Substance: BENZYL ALCOHOL
     Dates: start: 201208

REACTIONS (1)
  - Urticaria [Recovered/Resolved]
